FAERS Safety Report 7025621-1 (Version None)
Quarter: 2010Q4

REPORT INFORMATION
  Report Type: 
  Country: None (occurrence: None)
  Receive Date: 20101003
  Receipt Date: 20100922
  Transmission Date: 20110411
  Serious: Yes (Hospitalization)
  Sender: FDA-Public Use
  Company Number: US-BRISTOL-MYERS SQUIBB COMPANY-15311046

PATIENT
  Age: 78 Year
  Sex: Male
  Weight: 73 kg

DRUGS (3)
  1. CETUXIMAB [Suspect]
     Indication: NON-SMALL CELL LUNG CANCER
     Dosage: INTERRUPTED ON 8SEP10 11AUG-8SEP10(28DAYS) RECENT INF(6TH):08SEP10
     Route: 042
     Dates: start: 20100811
  2. CARBOPLATIN [Suspect]
     Indication: NON-SMALL CELL LUNG CANCER
     Dosage: RECENT INF(2ND):01SEP10
     Route: 042
     Dates: start: 20100811, end: 20100901
  3. GEMCITABINE [Suspect]
     Indication: NON-SMALL CELL LUNG CANCER
     Dosage: RECENT INF(4TH):08SEP10
     Route: 042
     Dates: start: 20100811, end: 20100908

REACTIONS (2)
  - DEHYDRATION [None]
  - HYPOTENSION [None]
